FAERS Safety Report 4819826-5 (Version None)
Quarter: 2005Q4

REPORT INFORMATION
  Report Type: 
  Country: None (occurrence: None)
  Receive Date: 20051102
  Receipt Date: 20051021
  Transmission Date: 20060501
  Serious: Yes (Death)
  Sender: FDA-Public Use
  Company Number: 05-NIP00109

PATIENT
  Age: 57 Year
  Sex: Male
  Weight: 86 kg

DRUGS (13)
  1. NIPENT [Suspect]
     Indication: GRAFT VERSUS HOST DISEASE
     Dosage: (0.5 MG), INTRAVENOUS
     Route: 042
     Dates: start: 20051006, end: 20051007
  2. ACYCLOVIR [Concomitant]
  3. DECORTIN [Concomitant]
  4. KALINOR [Concomitant]
  5. NEXIUM [Concomitant]
  6. NITRO [Concomitant]
  7. NORVASC [Concomitant]
  8. AUGMENT [Concomitant]
  9. PANTOZOL [Concomitant]
  10. PENTACAR [Concomitant]
  11. AMPHOMOR [Concomitant]
  12. AQUAPHOR [Concomitant]
  13. CANCIDAS [Concomitant]

REACTIONS (10)
  - ALVEOLITIS [None]
  - BLOOD BILIRUBIN INCREASED [None]
  - BONE MARROW FAILURE [None]
  - CHOLESTASIS [None]
  - DYSPNOEA [None]
  - ESCHERICHIA SEPSIS [None]
  - HAEMODIALYSIS [None]
  - MULTI-ORGAN FAILURE [None]
  - RENAL FAILURE ACUTE [None]
  - RESPIRATORY FAILURE [None]
